FAERS Safety Report 11763039 (Version 1)
Quarter: 2015Q4

REPORT INFORMATION
  Report Type: Spontaneous
  Country: US (occurrence: US)
  Receive Date: 20151120
  Receipt Date: 20151120
  Transmission Date: 20160304
  Serious: No
  Sender: FDA-Public Use
  Company Number: US-ELI_LILLY_AND_COMPANY-US201301005136

PATIENT
  Age: 80 Year
  Sex: Female

DRUGS (4)
  1. FORTEO [Suspect]
     Active Substance: TERIPARATIDE
     Indication: OSTEOPOROSIS
     Dosage: 20 UG, QD
     Route: 065
     Dates: start: 20130112
  2. FORTEO [Suspect]
     Active Substance: TERIPARATIDE
     Dosage: 20 UG, QD
     Route: 030
     Dates: start: 20130115, end: 20130115
  3. FORTEO [Suspect]
     Active Substance: TERIPARATIDE
     Dosage: 20 UG, QD
     Route: 065
  4. FORTEO [Suspect]
     Active Substance: TERIPARATIDE
     Dosage: 20 UG, QD
     Route: 065

REACTIONS (13)
  - Myalgia [Unknown]
  - Injection site pain [Not Recovered/Not Resolved]
  - Incorrect route of drug administration [Recovered/Resolved]
  - Malaise [Unknown]
  - Irritability [Unknown]
  - Anger [Unknown]
  - Injection site erythema [Not Recovered/Not Resolved]
  - Incorrect product storage [Unknown]
  - Incorrect product storage [Unknown]
  - Blood pressure abnormal [Unknown]
  - Abdominal pain upper [Unknown]
  - Pyrexia [Unknown]
  - Feeling cold [Unknown]

NARRATIVE: CASE EVENT DATE: 200301
